FAERS Safety Report 24789352 (Version 1)
Quarter: 2024Q4

REPORT INFORMATION
  Report Type: Spontaneous
  Country: US (occurrence: None)
  Receive Date: 20241229
  Receipt Date: 20241229
  Transmission Date: 20250115
  Serious: Yes (unspecified)
  Sender: Public
  Company Number: None

PATIENT
  Age: 33 Year
  Sex: Male

DRUGS (1)
  1. EPINEPHRINE\LIDOCAINE\PRILOCAINE [Suspect]
     Active Substance: EPINEPHRINE\LIDOCAINE\PRILOCAINE

REACTIONS (1)
  - Thermal burn [None]

NARRATIVE: CASE EVENT DATE: 20241203
